FAERS Safety Report 9764192 (Version 3)
Quarter: 2014Q1

REPORT INFORMATION
  Report Type: Report from Study
  Country: US (occurrence: US)
  Receive Date: 20131216
  Receipt Date: 20140221
  Transmission Date: 20141002
  Serious: Yes (Hospitalization, Other)
  Sender: FDA-Public Use
  Company Number: US-CELGENEUS-163-21880-13110589

PATIENT
  Age: 72 Year
  Sex: Male
  Weight: 84.8 kg

DRUGS (66)
  1. REVLIMID [Suspect]
     Indication: PLASMA CELL MYELOMA
     Dosage: 10 MILLIGRAM
     Route: 048
     Dates: start: 20130426
  2. DEXAMETHASONE [Suspect]
     Indication: PLASMA CELL MYELOMA
     Dosage: 40 MILLIGRAM
     Route: 048
     Dates: start: 20130426
  3. COUMADIN [Concomitant]
     Indication: PRODUCT USED FOR UNKNOWN INDICATION
     Route: 065
     Dates: start: 20130401
  4. CLOPIDOGREL [Concomitant]
     Indication: PRODUCT USED FOR UNKNOWN INDICATION
     Route: 065
     Dates: start: 20120601
  5. CLONIDINE [Concomitant]
     Indication: PRODUCT USED FOR UNKNOWN INDICATION
     Route: 065
     Dates: start: 20110501
  6. GLIMEPIRIDE [Concomitant]
     Indication: PRODUCT USED FOR UNKNOWN INDICATION
     Route: 065
     Dates: start: 20111101
  7. HYDRALAZINE [Concomitant]
     Indication: HYPERTENSION
     Route: 065
     Dates: start: 20120501
  8. HYDRALAZINE [Concomitant]
     Route: 065
     Dates: start: 20131104, end: 20131104
  9. ISOSORBIDE [Concomitant]
     Indication: PRODUCT USED FOR UNKNOWN INDICATION
     Route: 065
     Dates: start: 20120501
  10. LACTULOSE [Concomitant]
     Indication: PRODUCT USED FOR UNKNOWN INDICATION
     Route: 065
     Dates: start: 20130501
  11. INSULINE GLARGINE [Concomitant]
     Indication: PRODUCT USED FOR UNKNOWN INDICATION
     Route: 065
     Dates: start: 20130201
  12. LORTAB [Concomitant]
     Indication: PRODUCT USED FOR UNKNOWN INDICATION
     Route: 065
     Dates: start: 20130426
  13. MIRALAX [Concomitant]
     Indication: PRODUCT USED FOR UNKNOWN INDICATION
     Route: 065
     Dates: start: 20120101
  14. PITAVASTATIN [Concomitant]
     Indication: PRODUCT USED FOR UNKNOWN INDICATION
     Route: 065
     Dates: start: 20130301
  15. SAXAGLIPTIN [Concomitant]
     Indication: PRODUCT USED FOR UNKNOWN INDICATION
     Route: 065
     Dates: start: 20120601
  16. MENTHOL [Concomitant]
     Indication: ADVERSE EVENT
     Route: 065
     Dates: start: 20130604
  17. ZOMETA [Concomitant]
     Indication: PRODUCT USED FOR UNKNOWN INDICATION
     Route: 065
     Dates: start: 20130815
  18. PYRIDOXINE [Concomitant]
     Indication: ADVERSE EVENT
     Route: 065
     Dates: start: 20130822
  19. ACETAMINOPHEN [Concomitant]
     Indication: PYREXIA
     Route: 065
     Dates: start: 20131104, end: 20131104
  20. CLINDAMYCIN [Concomitant]
     Indication: INFECTION
     Route: 065
     Dates: start: 20131104, end: 20131105
  21. VALIUM [Concomitant]
     Indication: MUSCLE SPASMS
     Route: 065
     Dates: start: 20131104, end: 20131124
  22. SURFAK STOOL SOFTENER [Concomitant]
     Indication: CONSTIPATION
     Route: 065
     Dates: start: 20131104
  23. LASIX [Concomitant]
     Indication: TRANSFUSION
     Route: 065
     Dates: start: 20131102, end: 20131102
  24. LASIX [Concomitant]
     Route: 065
     Dates: start: 20131127
  25. GENTAMICIN [Concomitant]
     Indication: INFECTION
     Route: 065
     Dates: start: 20131104, end: 20131105
  26. MUCINEX [Concomitant]
     Indication: PREMEDICATION
     Route: 065
     Dates: start: 20131102, end: 20131102
  27. HYDROMORPHONE [Concomitant]
     Indication: FEMUR FRACTURE
     Route: 065
     Dates: start: 20131101, end: 20131105
  28. LABETALOL [Concomitant]
     Indication: HYPERTENSION
     Route: 065
     Dates: start: 20131104, end: 20131104
  29. ATIVAN [Concomitant]
     Indication: IRRITABILITY
     Route: 065
     Dates: start: 20131104, end: 20131104
  30. METHYLPREDNISOLONE [Concomitant]
     Indication: TRANSFUSION
     Route: 065
     Dates: start: 20131102, end: 20131102
  31. ONDANSETRON [Concomitant]
     Indication: NAUSEA
     Route: 065
     Dates: start: 20131101, end: 20131101
  32. PROTONIX [Concomitant]
     Indication: GASTROOESOPHAGEAL REFLUX DISEASE
     Route: 065
     Dates: start: 20131101, end: 20131108
  33. VITAMIN K [Concomitant]
     Indication: COAGULOPATHY
     Route: 065
     Dates: start: 20131103, end: 20131103
  34. ANCEF [Concomitant]
     Indication: INFECTION PROPHYLAXIS
     Route: 065
     Dates: start: 20131104, end: 20131104
  35. PERCOCET [Concomitant]
     Indication: PAIN
     Route: 065
     Dates: start: 20131101, end: 20131105
  36. XANAX [Concomitant]
     Indication: ANXIETY
     Route: 065
     Dates: start: 20131102
  37. INSULIN LISPRO [Concomitant]
     Indication: DIABETES MELLITUS
     Route: 065
     Dates: start: 20131101, end: 20131108
  38. RESTORIL [Concomitant]
     Indication: INSOMNIA
     Route: 065
     Dates: start: 20131103, end: 20140101
  39. LACTATED RINGERS [Concomitant]
     Indication: FLUID REPLACEMENT
     Route: 065
     Dates: start: 20131104, end: 20131104
  40. SODIUM CHLORIDE [Concomitant]
     Indication: FLUID REPLACEMENT
     Route: 065
     Dates: start: 20131101, end: 20131104
  41. BENADRYL [Concomitant]
     Indication: PREMEDICATION
     Route: 065
     Dates: start: 20131106, end: 20131106
  42. BENADRYL [Concomitant]
     Indication: PRURITUS
     Route: 048
     Dates: start: 20131106, end: 20131124
  43. LOVENOX [Concomitant]
     Indication: THROMBOSIS PROPHYLAXIS
     Route: 065
     Dates: start: 20131105, end: 20131122
  44. MAGNESIUM SULFATE [Concomitant]
     Indication: HYPOMAGNESAEMIA
     Route: 065
     Dates: start: 20131105, end: 20131105
  45. NORCO [Concomitant]
     Indication: PAIN
     Route: 065
     Dates: start: 20131105
  46. BISACODYL [Concomitant]
     Indication: CONSTIPATION
     Route: 065
     Dates: start: 20131107
  47. TORADOL [Concomitant]
     Indication: PAIN
     Route: 065
     Dates: start: 20131105, end: 20131105
  48. MORPHINE [Concomitant]
     Indication: PAIN
     Route: 065
     Dates: start: 20131106, end: 20131107
  49. FRESH FROZEN PLASMA [Concomitant]
     Indication: COAGULOPATHY
     Route: 065
     Dates: start: 20131102, end: 20131102
  50. FRESH FROZEN PLASMA [Concomitant]
     Route: 065
     Dates: start: 20131103, end: 20131103
  51. RED BLOOD CELLS [Concomitant]
     Indication: ANAEMIA
     Route: 041
     Dates: start: 20131102, end: 20131102
  52. RED BLOOD CELLS [Concomitant]
     Route: 065
     Dates: start: 20131106, end: 20131106
  53. PLATELETS [Concomitant]
     Indication: THROMBOCYTOPENIA
     Route: 065
     Dates: start: 20131103, end: 20131103
  54. BACTRIM [Concomitant]
     Indication: PRODUCT USED FOR UNKNOWN INDICATION
     Route: 065
     Dates: start: 20130905, end: 20130914
  55. INFLUENZA VACCINE [Concomitant]
     Indication: PRODUCT USED FOR UNKNOWN INDICATION
     Route: 065
     Dates: start: 20131010, end: 20131010
  56. DOCUSATE SODIUM [Concomitant]
     Indication: PRODUCT USED FOR UNKNOWN INDICATION
     Route: 065
     Dates: start: 20131104
  57. GUAIFENESIN [Concomitant]
     Indication: PRODUCT USED FOR UNKNOWN INDICATION
     Route: 065
     Dates: start: 20131102, end: 20131102
  58. CEFAZOLIN [Concomitant]
     Indication: PRODUCT USED FOR UNKNOWN INDICATION
     Route: 065
     Dates: start: 20131104, end: 20131104
  59. PRILOSEC [Concomitant]
     Indication: PRODUCT USED FOR UNKNOWN INDICATION
     Route: 065
     Dates: start: 20131108, end: 20131124
  60. MAALOX [Concomitant]
     Indication: PRODUCT USED FOR UNKNOWN INDICATION
     Route: 065
     Dates: start: 20131108
  61. ASPIRIN [Concomitant]
     Indication: PRODUCT USED FOR UNKNOWN INDICATION
     Route: 065
     Dates: start: 20131124
  62. ALUMINUM MAGNESIUM OXIDE [Concomitant]
     Indication: PRODUCT USED FOR UNKNOWN INDICATION
     Route: 065
     Dates: start: 20131108, end: 20131124
  63. CYCLOBENZAPRINE [Concomitant]
     Indication: ADVERSE EVENT
     Route: 065
     Dates: start: 20130605, end: 20130605
  64. CYCLOBENZAPRINE [Concomitant]
     Route: 065
     Dates: start: 20130608, end: 20130613
  65. BACTROBAN OINTMENT [Concomitant]
     Indication: ADVERSE EVENT
     Route: 065
     Dates: start: 20130718, end: 20130728
  66. KEFLEX [Concomitant]
     Indication: ADVERSE EVENT
     Dates: start: 20130718, end: 20130728

REACTIONS (9)
  - Fall [Recovered/Resolved]
  - Anxiety [Not Recovered/Not Resolved]
  - Femur fracture [Recovered/Resolved]
  - Insomnia [Not Recovered/Not Resolved]
  - Hypocalcaemia [Not Recovered/Not Resolved]
  - Hypomagnesaemia [Recovered/Resolved]
  - Pruritus [Not Recovered/Not Resolved]
  - Muscle spasms [Not Recovered/Not Resolved]
  - Anaemia [Recovered/Resolved]
